FAERS Safety Report 5256824-4 (Version None)
Quarter: 2007Q1

REPORT INFORMATION
  Report Type: 
  Country: None (occurrence: None)
  Receive Date: 20070306
  Receipt Date: 20070220
  Transmission Date: 20070707
  Serious: Yes (Other)
  Sender: FDA-Public Use
  Company Number: US-ELI_LILLY_AND_COMPANY-US200702004114

PATIENT
  Age: 51 Year
  Sex: Female

DRUGS (4)
  1. CYMBALTA [Suspect]
     Indication: PAIN
     Dosage: 60 MG, UNK
     Dates: start: 20060101
  2. CYMBALTA [Suspect]
     Dosage: 30 MG, UNK
  3. CYMBALTA [Suspect]
     Dosage: 30 MG, QOD
  4. TRAZODONE HCL [Concomitant]

REACTIONS (17)
  - BLOOD PRESSURE INCREASED [None]
  - CHEST PAIN [None]
  - CONVULSION [None]
  - DEPRESSION [None]
  - DIZZINESS [None]
  - DYSPNOEA [None]
  - ERYTHEMA [None]
  - FEELING ABNORMAL [None]
  - HEADACHE [None]
  - HEART RATE INCREASED [None]
  - HEPATITIS C [None]
  - HYPERHIDROSIS [None]
  - SUICIDAL IDEATION [None]
  - SUICIDE ATTEMPT [None]
  - TONGUE DISORDER [None]
  - TONGUE OEDEMA [None]
  - TREMOR [None]
